FAERS Safety Report 6070750-2 (Version None)
Quarter: 2009Q1

REPORT INFORMATION
  Report Type: 
  Country: None (occurrence: None)
  Receive Date: 20090209
  Receipt Date: 20070727
  Transmission Date: 20090719
  Serious: Yes (Death, Life-Threatening, Hospitalization)
  Sender: FDA-Public Use
  Company Number: US-SANOFI-SYNTHELABO-F01200602323

PATIENT
  Sex: Male
  Weight: 79.5 kg

DRUGS (12)
  1. VICODIN [Concomitant]
  2. MIRALAX [Concomitant]
  3. ATIVAN [Concomitant]
  4. NEURONTIN [Concomitant]
  5. OXYCODONE HCL [Concomitant]
  6. SENNA [Concomitant]
  7. BEVACIZUMAB [Suspect]
     Route: 042
     Dates: start: 20060908, end: 20060908
  8. PAXIL [Concomitant]
  9. DOCETAXEL [Suspect]
     Route: 042
     Dates: start: 20060908, end: 20060908
  10. ALBUTEROL [Concomitant]
  11. OXALIPLATIN [Suspect]
     Indication: LUNG NEOPLASM MALIGNANT
     Route: 042
     Dates: start: 20060908, end: 20060908
  12. TARCEVA [Concomitant]

REACTIONS (3)
  - ABDOMINAL PAIN [None]
  - BRONCHIAL FISTULA [None]
  - PNEUMONIA [None]
